FAERS Safety Report 10263476 (Version 1)
Quarter: 2014Q2

REPORT INFORMATION
  Report Type: Spontaneous
  Country: TR (occurrence: TR)
  Receive Date: 20140626
  Receipt Date: 20140626
  Transmission Date: 20141212
  Serious: Yes (Hospitalization)
  Sender: FDA-Public Use
  Company Number: PHHY2014TR075126

PATIENT
  Age: 76 Year
  Sex: Male

DRUGS (4)
  1. METOPROLOL [Suspect]
     Indication: ATRIAL FIBRILLATION
  2. WARFARIN [Interacting]
  3. QUINAPRIL [Interacting]
  4. FUROSEMIDE [Interacting]

REACTIONS (4)
  - Eye haemorrhage [Unknown]
  - Eye swelling [Unknown]
  - Contusion [Unknown]
  - Conjunctival haemorrhage [Unknown]
